FAERS Safety Report 12078680 (Version 1)
Quarter: 2016Q1

REPORT INFORMATION
  Report Type: Report from Study
  Country: US (occurrence: US)
  Receive Date: 20160216
  Receipt Date: 20160216
  Transmission Date: 20160526
  Serious: No
  Sender: FDA-Public Use
  Company Number: PHEH2016US003609

PATIENT
  Sex: Male

DRUGS (2)
  1. SIGNIFOR LAR [Suspect]
     Active Substance: PASIREOTIDE
     Indication: GIGANTISM
  2. SIGNIFOR LAR [Suspect]
     Active Substance: PASIREOTIDE
     Indication: ACROMEGALY
     Dosage: 20 MG, EVERY 28 DAYS
     Route: 030

REACTIONS (1)
  - Inappropriate schedule of drug administration [Unknown]
